FAERS Safety Report 4580555-7 (Version None)
Quarter: 2005Q1

REPORT INFORMATION
  Report Type: 
  Country: None (occurrence: None)
  Receive Date: 20050214
  Receipt Date: 20040412
  Transmission Date: 20050727
  Serious: Yes (Hospitalization)
  Sender: FDA-Public Use
  Company Number: US-GLAXOSMITHKLINE-A0506791A

PATIENT
  Age: 35 Year
  Sex: Female

DRUGS (4)
  1. LAMICTAL [Suspect]
     Indication: MIGRAINE
     Dosage: 25MG PER DAY
     Route: 048
     Dates: start: 20040325, end: 20040403
  2. MIRCETTE [Concomitant]
  3. PROTONIX [Concomitant]
  4. EFFEXOR [Concomitant]

REACTIONS (3)
  - HYPERSENSITIVITY [None]
  - RASH ERYTHEMATOUS [None]
  - RASH PRURITIC [None]
